FAERS Safety Report 10223787 (Version 1)
Quarter: 2014Q2

REPORT INFORMATION
  Report Type: Spontaneous
  Country: US (occurrence: US)
  Receive Date: 20140609
  Receipt Date: 20140609
  Transmission Date: 20141212
  Serious: Yes (Other)
  Sender: FDA-Public Use
  Company Number: US-BAYER-2014-083321

PATIENT
  Sex: Female

DRUGS (1)
  1. STIVARGA [Suspect]
     Indication: GASTROINTESTINAL STROMAL TUMOUR
     Dosage: DOSE REGIMEN: 4 X 40 MG
     Route: 048

REACTIONS (1)
  - Abscess jaw [Recovered/Resolved]
